FAERS Safety Report 22726792 (Version 5)
Quarter: 2025Q1

REPORT INFORMATION
  Report Type: Report from Study
  Country: GB (occurrence: GB)
  Receive Date: 20230720
  Receipt Date: 20250304
  Transmission Date: 20250408
  Serious: Yes (Other)
  Sender: NOVARTIS
  Company Number: GB-002147023-NVSC2023GB159118

PATIENT
  Sex: Male

DRUGS (1)
  1. COSENTYX [Suspect]
     Active Substance: SECUKINUMAB
     Indication: Psoriatic arthropathy
     Dosage: 150 MG, QMO (2 PRE-FILLED DISPOSABLE INJECTION)
     Route: 058
     Dates: start: 20230710

REACTIONS (12)
  - Ankylosing spondylitis [Unknown]
  - Hypoaesthesia [Unknown]
  - Sleep disorder [Unknown]
  - Mobility decreased [Unknown]
  - Muscular weakness [Unknown]
  - Cough [Recovered/Resolved]
  - Fatigue [Unknown]
  - Yawning [Unknown]
  - Pain [Unknown]
  - Dizziness [Unknown]
  - Fall [Unknown]
  - Headache [Unknown]
